FAERS Safety Report 7090988-5 (Version None)
Quarter: 2010Q4

REPORT INFORMATION
  Report Type: 
  Country: None (occurrence: None)
  Receive Date: 20101105
  Receipt Date: 20101105
  Transmission Date: 20110411
  Serious: Yes (Other)
  Sender: FDA-Public Use
  Company Number: None

PATIENT
  Age: 45 Year
  Sex: Female
  Weight: 62.5964 kg

DRUGS (1)
  1. SEREVENT [Suspect]
     Indication: ASTHMA
     Dates: start: 20100908, end: 20101025

REACTIONS (4)
  - ANXIETY [None]
  - DYSPNOEA [None]
  - INSOMNIA [None]
  - RHINORRHOEA [None]
